FAERS Safety Report 5921300-X (Version None)
Quarter: 2008Q4

REPORT INFORMATION
  Report Type: 
  Country: None (occurrence: None)
  Receive Date: 20081014
  Receipt Date: 20080926
  Transmission Date: 20090506
  Serious: Yes (Hospitalization)
  Sender: FDA-Public Use
  Company Number: 2008BI016187

PATIENT
  Age: 45 Year
  Sex: Female

DRUGS (5)
  1. TYSABRI [Suspect]
     Indication: RELAPSING-REMITTING MULTIPLE SCLEROSIS
     Dosage: 300 MG;QM;IV
     Route: 042
     Dates: start: 20070601
  2. LIORESAL [Concomitant]
  3. CIPRAMIL [Concomitant]
  4. CIPRO [Concomitant]
  5. EUGALAC [Concomitant]

REACTIONS (8)
  - DISEASE RECURRENCE [None]
  - ENCEPHALITIS HERPES [None]
  - EPISTAXIS [None]
  - NUCLEAR MAGNETIC RESONANCE IMAGING BRAIN ABNORMAL [None]
  - PNEUMONIA [None]
  - PROTEUS INFECTION [None]
  - RESPIRATORY FAILURE [None]
  - URINARY TRACT INFECTION [None]
